FAERS Safety Report 7385087-9 (Version None)
Quarter: 2011Q1

REPORT INFORMATION
  Report Type: 
  Country: None (occurrence: None)
  Receive Date: 20110330
  Receipt Date: 20110324
  Transmission Date: 20110831
  Serious: Yes (Other)
  Sender: FDA-Public Use
  Company Number: AU-ROCHE-767781

PATIENT
  Sex: Female

DRUGS (6)
  1. FOLIC ACID [Concomitant]
  2. ACTEMRA [Suspect]
     Indication: RHEUMATOID ARTHRITIS
     Route: 042
     Dates: start: 20110224
  3. NEO B12 [Concomitant]
  4. METHOTREXATE [Concomitant]
  5. PLAQUENIL [Concomitant]
  6. ATENOLOL [Concomitant]

REACTIONS (5)
  - MOUTH ULCERATION [None]
  - MALAISE [None]
  - ASTHENIA [None]
  - PYREXIA [None]
  - CHILLS [None]
